FAERS Safety Report 18863952 (Version 1)
Quarter: 2021Q1

REPORT INFORMATION
  Report Type: Spontaneous
  Country: IN (occurrence: IN)
  Receive Date: 20210209
  Receipt Date: 20210209
  Transmission Date: 20210420
  Serious: Yes (Other)
  Sender: FDA-Public Use
  Company Number: IN-NOVAST LABORATORIES LTD.-2021NOV000016

PATIENT
  Age: 24 Year
  Sex: Male
  Weight: 48 kg

DRUGS (2)
  1. CARBOPLATIN. [Suspect]
     Active Substance: CARBOPLATIN
     Indication: OVARIAN DYSGERMINOMA STAGE UNSPECIFIED
     Dosage: 450 MILLIGRAM
     Route: 065
  2. ETOPOSIDE. [Suspect]
     Active Substance: ETOPOSIDE
     Indication: OVARIAN DYSGERMINOMA STAGE UNSPECIFIED
     Dosage: 200 MILLIGRAM
     Route: 065

REACTIONS (4)
  - Febrile neutropenia [Unknown]
  - Acute kidney injury [Unknown]
  - Sepsis [Unknown]
  - Tumour lysis syndrome [Unknown]
